FAERS Safety Report 10255114 (Version 1)
Quarter: 2014Q2

REPORT INFORMATION
  Report Type: Spontaneous
  Country: US (occurrence: US)
  Receive Date: 20140624
  Receipt Date: 20140624
  Transmission Date: 20141212
  Serious: Yes (Other)
  Sender: FDA-Public Use
  Company Number: US-SA-2014SA078696

PATIENT
  Sex: 0

DRUGS (1)
  1. LANTUS [Suspect]
     Indication: PRODUCT USED FOR UNKNOWN INDICATION
     Route: 065

REACTIONS (6)
  - Myocardial infarction [Unknown]
  - Syncope [Unknown]
  - Dizziness [Unknown]
  - Chest pain [Unknown]
  - Abdominal discomfort [Unknown]
  - Hyperglycaemia [Unknown]
